FAERS Safety Report 16246355 (Version 3)
Quarter: 2021Q1

REPORT INFORMATION
  Report Type: Spontaneous
  Country: US (occurrence: US)
  Receive Date: 20190426
  Receipt Date: 20210113
  Transmission Date: 20210419
  Serious: Yes (Life-Threatening, Hospitalization, Other)
  Sender: FDA-Public Use
  Company Number: US-STRIDES ARCOLAB LIMITED-2019SP003543

PATIENT
  Age: 48 Year
  Sex: Female

DRUGS (1)
  1. IBUPROFEN. [Suspect]
     Active Substance: IBUPROFEN
     Indication: ARTHRALGIA
     Dosage: APPROX.4 GRAM PER DAY, ABOUT 20 TABLETS DAILY
     Route: 065

REACTIONS (14)
  - Hypokalaemia [Recovered/Resolved]
  - Renal tubular acidosis [Recovered/Resolved]
  - Hypophosphataemia [Recovered/Resolved]
  - Metabolic acidosis [Recovered/Resolved]
  - Vitamin D deficiency [Recovered/Resolved]
  - Myalgia [Recovered/Resolved]
  - Intentional product misuse [Unknown]
  - Transaminases increased [Recovered/Resolved]
  - Asthenia [Recovered/Resolved]
  - Drug abuse [Unknown]
  - Rhabdomyolysis [Recovered/Resolved]
  - Cystitis escherichia [Recovered/Resolved]
  - Polyuria [Recovered/Resolved]
  - Overdose [Unknown]
